FAERS Safety Report 11059085 (Version 2)
Quarter: 2015Q2

REPORT INFORMATION
  Report Type: Report from Study
  Country: AU (occurrence: AU)
  Receive Date: 20150423
  Receipt Date: 20150518
  Transmission Date: 20150821
  Serious: Yes (Hospitalization, Other)
  Sender: FDA-Public Use
  Company Number: PHNR2006AU00442

PATIENT
  Age: 65 Year
  Sex: Male

DRUGS (4)
  1. CLOZARIL [Suspect]
     Active Substance: CLOZAPINE
     Indication: SCHIZOPHRENIA
     Dosage: 200 MG, QD (AT NIGHT)
     Route: 048
     Dates: start: 20010524
  2. MINIPRESS [Concomitant]
     Active Substance: PRAZOSIN HYDROCHLORIDE
     Indication: HYPERTENSION
     Dosage: UNK
     Route: 065
  3. VALPROATE SODIUM. [Concomitant]
     Active Substance: VALPROATE SODIUM
     Indication: MOVEMENT DISORDER
     Dosage: 500 MG NOCTE
     Route: 048
  4. ANTIHYPERTENSIVES [Concomitant]
     Active Substance: UNSPECIFIED INGREDIENT

REACTIONS (31)
  - Mitral valve incompetence [Unknown]
  - Ventricular extrasystoles [Unknown]
  - Dilatation ventricular [Unknown]
  - Delusion [Unknown]
  - Red cell distribution width increased [Not Recovered/Not Resolved]
  - Glomerular filtration rate decreased [Unknown]
  - White blood cell count increased [Recovered/Resolved]
  - Neutrophil count increased [Recovered/Resolved]
  - Left atrial dilatation [Unknown]
  - Ventricular dyskinesia [Unknown]
  - Atrioventricular block first degree [Unknown]
  - Supraventricular extrasystoles [Unknown]
  - Fatigue [Unknown]
  - Aortic dilatation [Unknown]
  - Dysuria [Unknown]
  - Haemoglobin decreased [Recovered/Resolved]
  - Mitral valve disease [Unknown]
  - Abnormal behaviour [Unknown]
  - Blood cholesterol increased [Unknown]
  - Neutrophil count increased [Recovered/Resolved]
  - Bundle branch block [Unknown]
  - Low density lipoprotein increased [Unknown]
  - White blood cell count increased [Recovered/Resolved]
  - Left ventricular hypertrophy [Unknown]
  - Bundle branch block right [Unknown]
  - Anisocytosis [Unknown]
  - Heart rate irregular [Unknown]
  - Diastolic dysfunction [Unknown]
  - C-reactive protein increased [Unknown]
  - Arthralgia [Unknown]
  - Antipsychotic drug level below therapeutic [Not Recovered/Not Resolved]

NARRATIVE: CASE EVENT DATE: 20050131
